FAERS Safety Report 9043639 (Version 1)
Quarter: 2013Q1

REPORT INFORMATION
  Report Type: Report from Study
  Country: US (occurrence: US)
  Receive Date: 20130129
  Receipt Date: 20130129
  Transmission Date: 20140127
  Serious: No
  Sender: FDA-Public Use
  Company Number: US-ABBOTT-12P-163-0913306-00

PATIENT
  Age: 41 Year
  Sex: Female

DRUGS (4)
  1. HUMIRA 40 MG/0.8 ML PEN [Suspect]
     Indication: CROHN^S DISEASE
     Dates: start: 20111130
  2. FAMOTIDINE [Concomitant]
     Indication: GASTROOESOPHAGEAL REFLUX DISEASE
     Dosage: 40 MG DAILY
     Route: 048
  3. TPN [Concomitant]
     Indication: PRODUCT USED FOR UNKNOWN INDICATION
     Dosage: DAILY
  4. CETRIZINE [Concomitant]
     Indication: HYPERSENSITIVITY
     Dosage: 10 DAILY
     Route: 048
     Dates: start: 20120217

REACTIONS (6)
  - Pyrexia [Not Recovered/Not Resolved]
  - Headache [Unknown]
  - Sinusitis [None]
  - Hypersensitivity [None]
  - Sinus congestion [Unknown]
  - Cough [Unknown]
